FAERS Safety Report 18957053 (Version 1)
Quarter: 2021Q1

REPORT INFORMATION
  Report Type: Spontaneous
  Country: US (occurrence: US)
  Receive Date: 20210301
  Receipt Date: 20210301
  Transmission Date: 20210420
  Serious: Yes (Other)
  Sender: FDA-Public Use
  Company Number: None

PATIENT
  Age: 54 Year
  Sex: Female

DRUGS (6)
  1. SYMBICORT [Concomitant]
     Active Substance: BUDESONIDE\FORMOTEROL FUMARATE DIHYDRATE
  2. DOXYCYCLINE. [Concomitant]
     Active Substance: DOXYCYCLINE
  3. BAMLANIVIMAB. [Suspect]
     Active Substance: BAMLANIVIMAB
     Dosage: ?          OTHER FREQUENCY:ONCE;?
     Route: 042
     Dates: start: 20210126, end: 20210126
  4. MELOXICAM. [Concomitant]
     Active Substance: MELOXICAM
  5. HUMIRA [Concomitant]
     Active Substance: ADALIMUMAB
  6. VENTOLIN [Concomitant]
     Active Substance: ALBUTEROL SULFATE

REACTIONS (2)
  - Presyncope [None]
  - Vision blurred [None]

NARRATIVE: CASE EVENT DATE: 20210128
